FAERS Safety Report 16081226 (Version 1)
Quarter: 2019Q1

REPORT INFORMATION
  Report Type: Spontaneous
  Country: US (occurrence: US)
  Receive Date: 20190316
  Receipt Date: 20190316
  Transmission Date: 20190418
  Serious: No
  Sender: FDA-Public Use
  Company Number: US-TEVA-2019-US-1015456

PATIENT
  Sex: Female

DRUGS (1)
  1. ENOXAPARIN SODIUM TEVA [Suspect]
     Active Substance: ENOXAPARIN SODIUM
     Dosage: FORM STRENGTH: 40 MG / 0.4 ML
     Route: 065

REACTIONS (3)
  - Injection site pain [Unknown]
  - Syringe issue [None]
  - Product quality issue [Unknown]
